FAERS Safety Report 8030810-3 (Version None)
Quarter: 2012Q1

REPORT INFORMATION
  Report Type: 
  Country: None (occurrence: None)
  Receive Date: 20120109
  Receipt Date: 20120106
  Transmission Date: 20120608
  Serious: Yes (Other)
  Sender: FDA-Public Use
  Company Number: US-PFIZER INC-2012004955

PATIENT
  Sex: Male
  Weight: 70.748 kg

DRUGS (4)
  1. CHANTIX [Suspect]
     Dosage: 4 MG, UNK
     Route: 048
     Dates: start: 20111201, end: 20111215
  2. ATIVAN [Concomitant]
     Indication: CONVULSION
     Dosage: 1 MG, EVERY 4 HRS
     Route: 048
  3. METHADONE [Concomitant]
     Indication: PAIN
     Dosage: 20 MG, 2X/DAY
     Route: 048
  4. CHANTIX [Suspect]
     Indication: SMOKING CESSATION THERAPY
     Dosage: UNK
     Route: 048
     Dates: start: 20111208, end: 20111201

REACTIONS (10)
  - RETCHING [None]
  - PHARYNGEAL OEDEMA [None]
  - SWOLLEN TONGUE [None]
  - DRY MOUTH [None]
  - BLISTER [None]
  - INCORRECT DOSE ADMINISTERED [None]
  - PHARYNGEAL MASS [None]
  - FEELING ABNORMAL [None]
  - DYSPNOEA [None]
  - OROPHARYNGEAL PAIN [None]
